FAERS Safety Report 7150092-4 (Version None)
Quarter: 2010Q4

REPORT INFORMATION
  Report Type: 
  Country: None (occurrence: None)
  Receive Date: 20101210
  Receipt Date: 20101129
  Transmission Date: 20110411
  Serious: Yes (Hospitalization, Other)
  Sender: FDA-Public Use
  Company Number: US-ELI_LILLY_AND_COMPANY-US201012000177

PATIENT
  Sex: Female

DRUGS (9)
  1. ZYPREXA [Suspect]
     Indication: AGGRESSION
     Dosage: 5 MG, DAILY (1/D)
     Route: 048
     Dates: start: 20100601
  2. ZYPREXA [Suspect]
     Dosage: 7.5 MG, DAILY (1/D)
     Route: 048
     Dates: start: 20100701, end: 20101001
  3. ZYPREXA ZYDIS [Suspect]
     Indication: AGGRESSION
     Dosage: 2.5 MG, 3/D
     Dates: start: 20101001
  4. POTASSIUM CHLORIDE [Concomitant]
  5. NAMENDA [Concomitant]
  6. ARICEPT [Concomitant]
  7. TYLENOL (CAPLET) [Concomitant]
  8. VALIUM /NET/ [Concomitant]
  9. HALDOL [Concomitant]

REACTIONS (4)
  - ALTERED STATE OF CONSCIOUSNESS [None]
  - DEPRESSED LEVEL OF CONSCIOUSNESS [None]
  - INTENTIONAL DRUG MISUSE [None]
  - MENTAL IMPAIRMENT [None]
